FAERS Safety Report 6084219-2 (Version None)
Quarter: 2009Q1

REPORT INFORMATION
  Report Type: 
  Country: None (occurrence: None)
  Receive Date: 20090217
  Receipt Date: 20090206
  Transmission Date: 20090719
  Serious: Yes (Hospitalization)
  Sender: FDA-Public Use
  Company Number: CIP09000326

PATIENT
  Age: 55 Year
  Sex: Male
  Weight: 174 kg

DRUGS (12)
  1. ACTONEL [Suspect]
     Indication: OSTEOPOROSIS
     Dosage: 35 MG ONCE WEEKLY, ORAL : 35 MG ONCE WEEKLY, ORAL
     Route: 048
     Dates: start: 20080401, end: 20080601
  2. ACTONEL [Suspect]
     Indication: OSTEOPOROSIS
     Dosage: 35 MG ONCE WEEKLY, ORAL : 35 MG ONCE WEEKLY, ORAL
     Route: 048
     Dates: start: 20090101, end: 20090205
  3. OSCAL 500+D (CALCIUM CARBONATE, ERGOCALCIFEROL) [Suspect]
     Indication: DRUG LEVEL THERAPEUTIC
     Dosage: 2 TABLETS DAILY, ORAL : 2 TABLETS DAILY, ORAL
     Route: 048
     Dates: start: 20080401, end: 20080601
  4. OSCAL 500+D (CALCIUM CARBONATE, ERGOCALCIFEROL) [Suspect]
     Indication: DRUG LEVEL THERAPEUTIC
     Dosage: 2 TABLETS DAILY, ORAL : 2 TABLETS DAILY, ORAL
     Route: 048
     Dates: start: 20090101, end: 20090205
  5. PHENOBARBITAL TAB [Concomitant]
  6. PHENYTOIN [Concomitant]
  7. DECADRON [Concomitant]
  8. FRISIUM (CLOBAZAM) [Concomitant]
  9. MIODARON (AMIODARONE HYDROCHLORIDE) [Concomitant]
  10. VASOPRIL (ENALAPRIL MALEATE) [Concomitant]
  11. ASCORBIC ACID [Concomitant]
  12. VYTORIN [Concomitant]

REACTIONS (1)
  - CONVULSION [None]
